FAERS Safety Report 9436836 (Version 1)
Quarter: 2013Q3

REPORT INFORMATION
  Report Type: Spontaneous
  Country: US (occurrence: US)
  Receive Date: 20130802
  Receipt Date: 20130802
  Transmission Date: 20140515
  Serious: No
  Sender: FDA-Public Use
  Company Number: US-PFIZER INC-2013222363

PATIENT
  Age: 43 Year
  Sex: Female
  Weight: 58.96 kg

DRUGS (1)
  1. PROTONIX [Suspect]
     Indication: ULCER HAEMORRHAGE
     Dosage: UNK
     Dates: start: 20130727, end: 20130728

REACTIONS (1)
  - Malaise [Recovered/Resolved]
